FAERS Safety Report 6695356-3 (Version None)
Quarter: 2010Q2

REPORT INFORMATION
  Report Type: 
  Country: None (occurrence: None)
  Receive Date: 20100423
  Receipt Date: 20100423
  Transmission Date: 20101027
  Serious: Yes (Hospitalization)
  Sender: FDA-Public Use
  Company Number: None

PATIENT
  Age: 69 Year
  Sex: Male
  Weight: 29.4838 kg

DRUGS (11)
  1. IBUPROFEN (ADVIL) [Suspect]
     Indication: PAIN
     Dosage: 200 MG 2-10 TABS DAILY PO ; CHRONIC
     Route: 048
  2. DULCOLAX [Concomitant]
  3. ATIVAN [Concomitant]
  4. LASIX [Concomitant]
  5. METOPROLOL TARTRATE [Concomitant]
  6. POTASSIUM CHLORIDE [Concomitant]
  7. PREDNISONE TAB [Concomitant]
  8. OMEPRAZOLE [Concomitant]
  9. GUAIFENESIN AND DEXTROMETHORPHAN HBR [Concomitant]
  10. LISINOPRIL [Concomitant]
  11. ADVIL [Concomitant]

REACTIONS (4)
  - BLOOD PRESSURE DECREASED [None]
  - DEHYDRATION [None]
  - INCORRECT DOSE ADMINISTERED [None]
  - RENAL FAILURE ACUTE [None]
